FAERS Safety Report 22587573 (Version 1)
Quarter: 2023Q2

REPORT INFORMATION
  Report Type: Other
  Country: DE (occurrence: None)
  Receive Date: 20230612
  Receipt Date: 20230612
  Transmission Date: 20230722
  Serious: Yes (Hospitalization)
  Sender: FDA-Public Use
  Company Number: DE-ROCHE-3253675

PATIENT
  Age: 31 Year
  Sex: Female
  Weight: 68.554 kg

DRUGS (1)
  1. OCRELIZUMAB [Suspect]
     Active Substance: OCRELIZUMAB
     Indication: Relapsing-remitting multiple sclerosis
     Dosage: START DATE AND STOP DATE IF LAST DOSE PRIOR TO THE LMP (LAST MENSTRUAL PERIOD) WAS 20/JUN/2022.
     Route: 065
     Dates: start: 20220620, end: 20220620

REACTIONS (2)
  - Maternal exposure before pregnancy [Unknown]
  - Premature delivery [Unknown]

NARRATIVE: CASE EVENT DATE: 20230525
